FAERS Safety Report 14860858 (Version 1)
Quarter: 2018Q2

REPORT INFORMATION
  Report Type: Spontaneous
  Country: US (occurrence: US)
  Receive Date: 20180508
  Receipt Date: 20180508
  Transmission Date: 20180711
  Serious: No
  Sender: FDA-Public Use
  Company Number: US-GLENMARK PHARMACEUTICALS-2017GMK030095

PATIENT

DRUGS (1)
  1. TOPIRAMATE TABLETS 25MG [Suspect]
     Active Substance: TOPIRAMATE
     Indication: PRODUCT USED FOR UNKNOWN INDICATION
     Dosage: 25 MG, BID
     Route: 048

REACTIONS (4)
  - Medication residue present [Unknown]
  - Product solubility abnormal [Unknown]
  - Product quality issue [Unknown]
  - Product substitution issue [Unknown]
